FAERS Safety Report 6231414-5 (Version None)
Quarter: 2009Q2

REPORT INFORMATION
  Report Type: 
  Country: None (occurrence: None)
  Receive Date: 20090603
  Receipt Date: 20090603
  Transmission Date: 20091009
  Serious: Yes (Other)
  Sender: FDA-Public Use
  Company Number: None

PATIENT
  Age: 52 Year
  Sex: Female
  Weight: 73.2 kg

DRUGS (15)
  1. TYSABRI [Suspect]
     Indication: MULTIPLE SCLEROSIS
     Dosage: TYSABRI 300 MG Q 4 WEEKS IV INFUSION
     Route: 042
     Dates: start: 20090324
  2. PREMARIN [Concomitant]
  3. AMANTADINE HCL [Concomitant]
  4. CLONAZEPAM [Concomitant]
  5. NEXIUM [Concomitant]
  6. ZANTAC [Concomitant]
  7. VITAMIN B COMPLEX CAP [Concomitant]
  8. ASCORBIC ACID [Concomitant]
  9. VITAMIN E [Concomitant]
  10. VITAMIN D [Concomitant]
  11. VITAMIN D [Concomitant]
  12. EVENING PRIMROSE [Concomitant]
  13. CALCIUM [Concomitant]
  14. MEMORY VITAMINS WITH GINKO [Concomitant]
  15. BIOTIN [Concomitant]

REACTIONS (3)
  - FOLLICULITIS [None]
  - RASH [None]
  - RASH ERYTHEMATOUS [None]
